FAERS Safety Report 5742118-7 (Version None)
Quarter: 2008Q2

REPORT INFORMATION
  Report Type: 
  Country: None (occurrence: None)
  Receive Date: 20080519
  Receipt Date: 20080515
  Transmission Date: 20081010
  Serious: Yes (Hospitalization)
  Sender: FDA-Public Use
  Company Number: BE-BRISTOL-MYERS SQUIBB COMPANY-13700638

PATIENT
  Age: 59 Year
  Sex: Male

DRUGS (4)
  1. ABATACEPT [Suspect]
     Indication: RHEUMATOID ARTHRITIS
     Dosage: INTERRUPTED ON 23JAN07.RESTARTED ON 23APR07
     Route: 042
     Dates: start: 20010326
  2. MEDROL [Concomitant]
  3. REPAGLINIDE [Concomitant]
  4. AVANDIA [Concomitant]

REACTIONS (1)
  - THROMBOSIS [None]
